FAERS Safety Report 13089170 (Version 2)
Quarter: 2017Q1

REPORT INFORMATION
  Report Type: Spontaneous
  Country: US (occurrence: US)
  Receive Date: 20170105
  Receipt Date: 20170217
  Transmission Date: 20170428
  Serious: No
  Sender: FDA-Public Use
  Company Number: US-SHIRE-US201620055

PATIENT
  Sex: Female
  Weight: 79.37 kg

DRUGS (3)
  1. XIIDRA [Suspect]
     Active Substance: LIFITEGRAST
     Indication: DRY EYE
     Dosage: UNK (5%), 2X/DAY:BID
     Route: 047
     Dates: start: 2016
  2. LOSARTAN. [Concomitant]
     Active Substance: LOSARTAN
     Indication: HYPERTENSION
     Dosage: 50 MG, UNKNOWN
     Route: 065
     Dates: start: 2016
  3. STATIN                             /00848101/ [Concomitant]
     Active Substance: SIMVASTATIN
     Indication: BLOOD CHOLESTEROL
     Dosage: 40 MG, UNKNOWN
     Route: 065

REACTIONS (2)
  - Instillation site pain [Unknown]
  - Dry eye [Unknown]

NARRATIVE: CASE EVENT DATE: 2016
